FAERS Safety Report 7806678-4 (Version None)
Quarter: 2011Q4

REPORT INFORMATION
  Report Type: 
  Country: None (occurrence: None)
  Receive Date: 20111011
  Receipt Date: 20111003
  Transmission Date: 20120403
  Serious: Yes (Hospitalization, Other)
  Sender: FDA-Public Use
  Company Number: US-JNJFOC-20111003211

PATIENT
  Sex: Male
  Weight: 83.92 kg

DRUGS (4)
  1. HALDOL [Suspect]
     Indication: AGGRESSION
     Dosage: ONE TIME
     Route: 030
     Dates: start: 20110908, end: 20110908
  2. VERSED [Suspect]
     Indication: AGGRESSION
     Dosage: ONE TIME
     Route: 042
     Dates: start: 20110908, end: 20110908
  3. HALDOL [Suspect]
     Indication: CONFUSIONAL STATE
     Dosage: ONE TIME
     Route: 030
     Dates: start: 20110908, end: 20110908
  4. VERSED [Suspect]
     Indication: CONFUSIONAL STATE
     Dosage: ONE TIME
     Route: 042
     Dates: start: 20110908, end: 20110908

REACTIONS (3)
  - CONVULSION [None]
  - MUSCLE CONTRACTIONS INVOLUNTARY [None]
  - DYSPNOEA [None]
